FAERS Safety Report 7517655-5 (Version None)
Quarter: 2011Q2

REPORT INFORMATION
  Report Type: 
  Country: None (occurrence: None)
  Receive Date: 20110602
  Receipt Date: 20110524
  Transmission Date: 20111010
  Serious: Yes (Hospitalization)
  Sender: FDA-Public Use
  Company Number: US-BIOGENIDEC-2011BI013401

PATIENT
  Age: 36 Year
  Sex: Female
  Weight: 53 kg

DRUGS (13)
  1. AMBIEN [Concomitant]
     Route: 048
  2. TYSABRI [Suspect]
     Indication: CROHN'S DISEASE
     Route: 042
     Dates: start: 20080424, end: 20110209
  3. LISINOPRIL [Concomitant]
     Route: 048
  4. OXYCODONE HCL [Concomitant]
     Route: 048
  5. AMLODIPINE [Concomitant]
     Route: 048
  6. ONDANSETRON [Concomitant]
     Route: 048
  7. OXYCONTIN [Concomitant]
     Route: 048
  8. GABAPENTIN [Concomitant]
     Route: 048
  9. MIRTAZAPINE [Concomitant]
     Route: 048
  10. GABAPENTIN [Concomitant]
     Route: 048
  11. BUDESONIDE [Concomitant]
     Route: 048
  12. LORAZEPAM [Concomitant]
     Route: 048
  13. TRAMADOL HCL [Concomitant]
     Route: 048

REACTIONS (15)
  - PNEUMONIA [None]
  - HYPERKALAEMIA [None]
  - RETINOPATHY HYPERTENSIVE [None]
  - HAEMOLYTIC URAEMIC SYNDROME [None]
  - LOSS OF CONSCIOUSNESS [None]
  - CANDIDA SEPSIS [None]
  - CROHN'S DISEASE [None]
  - THROMBOCYTOPENIA [None]
  - BACTERIAL SEPSIS [None]
  - RENAL FAILURE CHRONIC [None]
  - URINARY TRACT INFECTION [None]
  - LACTOBACILLUS INFECTION [None]
  - DERMATITIS CONTACT [None]
  - THROMBOTIC THROMBOCYTOPENIC PURPURA [None]
  - CARDIOMYOPATHY [None]
